FAERS Safety Report 13260510 (Version 1)
Quarter: 2017Q1

REPORT INFORMATION
  Report Type: Spontaneous
  Country: TR (occurrence: TR)
  Receive Date: 20170222
  Receipt Date: 20170222
  Transmission Date: 20170428
  Serious: Yes (Death, Other)
  Sender: FDA-Public Use
  Company Number: TR-UCBSA-2017007091

PATIENT
  Age: 55 Year
  Sex: Female

DRUGS (13)
  1. MESNA. [Concomitant]
     Active Substance: MESNA
     Indication: LYMPHOMA
     Dosage: UNKNOWN DOSE
  2. LEVETIRACETAM. [Suspect]
     Active Substance: LEVETIRACETAM
     Indication: OFF LABEL USE
     Dosage: 500 MG, 2X/DAY (BID)
  3. RITUXIMAB [Concomitant]
     Active Substance: RITUXIMAB
     Dosage: 375 MG/M2 (3 H INFUSION ON DAY 1)
  4. ETOPOSIDE. [Concomitant]
     Active Substance: ETOPOSIDE
     Indication: LYMPHOMA
     Dosage: 150 MG/M2 (3 H INFUSION ON DAYS 1-3)
  5. GRANISETRON [Concomitant]
     Active Substance: GRANISETRON
     Indication: PRODUCT USED FOR UNKNOWN INDICATION
     Dosage: 3 MG PER DAY
  6. DIAZEPAM. [Concomitant]
     Active Substance: DIAZEPAM
     Indication: STATUS EPILEPTICUS
     Dosage: 10 MG
     Route: 042
  7. IFOSFAMIDE. [Concomitant]
     Active Substance: IFOSFAMIDE
     Indication: LYMPHOMA
     Dosage: 1000 MG/M2 (1 H INFUSION ON DAYS 1-5)
  8. IDARUBICIN [Concomitant]
     Active Substance: IDARUBICIN
     Indication: LYMPHOMA
     Dosage: 10 MG/M2 (1 H INFUSION ON DAYS 1 AND 2)
  9. CYTOSINE ARABINOSIDE [Concomitant]
     Active Substance: CYTARABINE
     Indication: LYMPHOMA
     Dosage: 2 G/M2 ON 2 OCCASIONS
  10. CISPLATIN. [Concomitant]
     Active Substance: CISPLATIN
     Indication: LYMPHOMA
     Dosage: 100 MG/M2 (ONE INFUSION OVER 24 HRS)
  11. LEVETIRACETAM. [Suspect]
     Active Substance: LEVETIRACETAM
     Indication: STATUS EPILEPTICUS
     Dosage: 250 MG, 2X/DAY (BID)
  12. OMEPRAZOLE. [Concomitant]
     Active Substance: OMEPRAZOLE
     Indication: PRODUCT USED FOR UNKNOWN INDICATION
     Dosage: 20 MG PER DAY
  13. RITUXIMAB [Concomitant]
     Active Substance: RITUXIMAB
     Indication: LYMPHOMA
     Dosage: UNK, EV 4 WEEKS

REACTIONS (6)
  - Death [Fatal]
  - Pancytopenia [Unknown]
  - Off label use [Unknown]
  - Febrile neutropenia [Unknown]
  - Hepatomegaly [Unknown]
  - Pneumothorax [Unknown]
